FAERS Safety Report 10190941 (Version 5)
Quarter: 2016Q1

REPORT INFORMATION
  Report Type: Report from Study
  Country: AU (occurrence: AU)
  Receive Date: 20140523
  Receipt Date: 20160111
  Transmission Date: 20160525
  Serious: Yes (Hospitalization)
  Sender: FDA-Public Use
  Company Number: AU-ROCHE-1407025

PATIENT
  Age: 79 Year
  Sex: Female

DRUGS (9)
  1. RANIBIZUMAB [Suspect]
     Active Substance: RANIBIZUMAB
     Indication: NEOVASCULAR AGE-RELATED MACULAR DEGENERATION
     Dosage: 0.5 MG/0.05 ML?THE PATIENT RECEIVED HIS NEXT DOSE OF 0.5 MG/0.05 ML RANIBIZUMAB PRIOR TO EVENT ONSET
     Route: 050
     Dates: start: 20081015, end: 20081015
  2. RANIBIZUMAB [Suspect]
     Active Substance: RANIBIZUMAB
     Dosage: 0.5 MG/0.05 ML
     Route: 050
     Dates: start: 20140319, end: 20140319
  3. ACEBUTOLOL HYDROCHLORIDE. [Concomitant]
     Active Substance: ACEBUTOLOL HYDROCHLORIDE
     Route: 065
     Dates: start: 2006
  4. RANIBIZUMAB [Suspect]
     Active Substance: RANIBIZUMAB
     Dosage: 0.5MG/0.05ML
     Route: 050
     Dates: start: 20150902, end: 20150902
  5. THYROXINE [Concomitant]
     Active Substance: LEVOTHYROXINE
     Route: 065
     Dates: start: 1998
  6. CARTIA (AUSTRALIA) [Concomitant]
     Route: 065
     Dates: start: 2001
  7. OFLOXACIN. [Concomitant]
     Active Substance: OFLOXACIN
     Route: 065
     Dates: start: 1997
  8. VENTOLINE [Concomitant]
     Active Substance: ALBUTEROL
     Route: 065
     Dates: start: 2006
  9. ESOMEPRAZOLE MAGNESIUM. [Concomitant]
     Active Substance: ESOMEPRAZOLE MAGNESIUM
     Route: 065
     Dates: start: 2006

REACTIONS (5)
  - Asthma [Recovering/Resolving]
  - Eye injury [Unknown]
  - Conjunctival haemorrhage [Unknown]
  - Asthma [Recovered/Resolved]
  - Ocular hyperaemia [Unknown]

NARRATIVE: CASE EVENT DATE: 20120708
